FAERS Safety Report 25201488 (Version 1)
Quarter: 2025Q2

REPORT INFORMATION
  Report Type: Spontaneous
  Country: US (occurrence: US)
  Receive Date: 20250416
  Receipt Date: 20250416
  Transmission Date: 20250717
  Serious: No
  Sender: ENDO
  Company Number: US-ENDO USA, INC.-2025-000495

PATIENT
  Age: 73 Year
  Sex: Male
  Weight: 86.168 kg

DRUGS (9)
  1. AVEED [Suspect]
     Active Substance: TESTOSTERONE UNDECANOATE
     Indication: Blood testosterone decreased
     Route: 051
     Dates: start: 20230905
  2. AVEED [Suspect]
     Active Substance: TESTOSTERONE UNDECANOATE
     Route: 051
     Dates: start: 20230808
  3. AVEED [Suspect]
     Active Substance: TESTOSTERONE UNDECANOATE
     Route: 051
     Dates: start: 20231128
  4. AVEED [Suspect]
     Active Substance: TESTOSTERONE UNDECANOATE
     Route: 051
     Dates: start: 202401
  5. AVEED [Suspect]
     Active Substance: TESTOSTERONE UNDECANOATE
     Route: 051
     Dates: start: 20240319
  6. AVEED [Suspect]
     Active Substance: TESTOSTERONE UNDECANOATE
     Route: 051
     Dates: start: 20240807
  7. AVEED [Suspect]
     Active Substance: TESTOSTERONE UNDECANOATE
     Route: 051
     Dates: start: 20241016
  8. AVEED [Suspect]
     Active Substance: TESTOSTERONE UNDECANOATE
     Route: 051
     Dates: start: 20241218
  9. AVEED [Suspect]
     Active Substance: TESTOSTERONE UNDECANOATE
     Route: 051
     Dates: start: 20250226, end: 202502

REACTIONS (3)
  - Blood testosterone decreased [Recovered/Resolved]
  - Drug effect less than expected [Not Recovered/Not Resolved]
  - Inappropriate schedule of product administration [Recovered/Resolved]

NARRATIVE: CASE EVENT DATE: 20231101
